FAERS Safety Report 22526100 (Version 1)
Quarter: 2023Q2

REPORT INFORMATION
  Report Type: Spontaneous
  Country: IT (occurrence: IT)
  Receive Date: 20230606
  Receipt Date: 20230606
  Transmission Date: 20230721
  Serious: Yes (Other)
  Sender: FDA-Public Use
  Company Number: IT-TEVA-2023-IT-2889691

PATIENT
  Age: 70 Year
  Sex: Female

DRUGS (9)
  1. KEYTRUDA [Suspect]
     Active Substance: PEMBROLIZUMAB
     Indication: Breast cancer
     Dosage: 200 MILLIGRAM, EVERY 3 WEEKS
     Route: 042
     Dates: start: 20230331
  2. KEYTRUDA [Suspect]
     Active Substance: PEMBROLIZUMAB
     Dosage: 200 MILLIGRAM, EVERY 3 WEEKS
     Route: 042
     Dates: start: 20230220, end: 202303
  3. KEYTRUDA [Suspect]
     Active Substance: PEMBROLIZUMAB
     Dosage: 200 MILLIGRAM, EVERY 3 WEEKS
     Route: 042
     Dates: start: 20230130, end: 202302
  4. CARBOPLATIN [Suspect]
     Active Substance: CARBOPLATIN
     Indication: Breast cancer
     Dosage: 120 MILLIGRAM, WEEKLY
     Route: 042
     Dates: start: 20230331
  5. CARBOPLATIN [Suspect]
     Active Substance: CARBOPLATIN
     Dosage: 120 MILLIGRAM, WEEKLY
     Route: 042
     Dates: start: 20230220, end: 202303
  6. CARBOPLATIN [Suspect]
     Active Substance: CARBOPLATIN
     Dosage: 120 MILLIGRAM, WEEKLY
     Route: 042
     Dates: start: 20230130, end: 202302
  7. PACLITAXEL [Suspect]
     Active Substance: PACLITAXEL
     Indication: Breast cancer
     Dosage: 110 MILLIGRAM, WEEKLY
     Route: 042
     Dates: start: 20230220
  8. PACLITAXEL [Suspect]
     Active Substance: PACLITAXEL
     Dosage: 110 MILLIGRAM, WEEKLY
     Route: 042
     Dates: start: 20230130, end: 202302
  9. PACLITAXEL [Suspect]
     Active Substance: PACLITAXEL
     Dosage: 110 MILLIGRAM, WEEKLY
     Route: 042
     Dates: start: 20230331

REACTIONS (2)
  - Neutrophil count decreased [Recovered/Resolved]
  - Constipation [Recovered/Resolved]

NARRATIVE: CASE EVENT DATE: 20230213
